FAERS Safety Report 5857145-9 (Version None)
Quarter: 2008Q3

REPORT INFORMATION
  Report Type: 
  Country: None (occurrence: None)
  Receive Date: 20080821
  Receipt Date: 20080805
  Transmission Date: 20090109
  Serious: Yes (Hospitalization, Disabling)
  Sender: FDA-Public Use
  Company Number: 2008BI020397

PATIENT
  Age: 58 Year
  Sex: Female
  Weight: 65 kg

DRUGS (6)
  1. TYSABRI [Suspect]
     Indication: RELAPSING-REMITTING MULTIPLE SCLEROSIS
     Dosage: 300 MG; QM; IV
     Route: 042
     Dates: start: 20070101
  2. ENALAPRIL MALEATE [Concomitant]
  3. TOLTERODIN [Concomitant]
  4. SERTRALINE HYDROCHLORIDE [Concomitant]
  5. ESTRADIOL [Concomitant]
  6. JODTHYROX [Concomitant]

REACTIONS (2)
  - HEMIPARESIS [None]
  - ISCHAEMIC STROKE [None]
